FAERS Safety Report 19489771 (Version 1)
Quarter: 2021Q3

REPORT INFORMATION
  Report Type: Spontaneous
  Country: US (occurrence: US)
  Receive Date: 20210704
  Receipt Date: 20210704
  Transmission Date: 20211014
  Serious: Yes (Hospitalization, Other)
  Sender: FDA-Public Use
  Company Number: US-TEVA-2021-US-1928264

PATIENT
  Age: 66 Year
  Sex: Female
  Weight: 117.9 kg

DRUGS (5)
  1. ADCIRCA [Concomitant]
     Active Substance: TADALAFIL
  2. LISINOPRIL. [Suspect]
     Active Substance: LISINOPRIL
     Route: 065
  3. SPIRONOLACTONE. [Interacting]
     Active Substance: SPIRONOLACTONE
     Route: 065
  4. TYVASO [Interacting]
     Active Substance: TREPROSTINIL
     Indication: PULMONARY ARTERIAL HYPERTENSION
     Dosage: TREPROSTINIL SODIUM (INHALED), INHALATION GAS, AS 60?120 G (10?20 BREATHS), FOUR TIMES A DAY (QID)
     Route: 065
     Dates: start: 20200310
  5. COVID?19 VACCINE NOS. [Interacting]
     Active Substance: COVID-19 VACCINE NOS
     Route: 065

REACTIONS (9)
  - Feeling abnormal [Unknown]
  - Disturbance in attention [Unknown]
  - Dehydration [Unknown]
  - Aphasia [Unknown]
  - Loss of consciousness [Unknown]
  - Hypotension [Recovered/Resolved]
  - Fatigue [Unknown]
  - Drug interaction [Unknown]
  - Movement disorder [Unknown]

NARRATIVE: CASE EVENT DATE: 20210601
